FAERS Safety Report 19597551 (Version 1)
Quarter: 2021Q3

REPORT INFORMATION
  Report Type: Spontaneous
  Country: US (occurrence: US)
  Receive Date: 20210722
  Receipt Date: 20210722
  Transmission Date: 20211014
  Serious: No
  Sender: FDA-Public Use
  Company Number: None

PATIENT
  Sex: Female
  Weight: 53.1 kg

DRUGS (22)
  1. FUROSEMIDE. [Concomitant]
     Active Substance: FUROSEMIDE
  2. PROPANOLOL [Concomitant]
     Active Substance: PROPRANOLOL HYDROCHLORIDE
  3. ACYCLOVIR. [Concomitant]
     Active Substance: ACYCLOVIR
  4. FAMOTIDINE. [Concomitant]
     Active Substance: FAMOTIDINE
  5. GLUCOSAMINE [Concomitant]
     Active Substance: GLUCOSAMINE
  6. MELATONIN [Concomitant]
     Active Substance: MELATONIN
  7. PAROXETINE. [Concomitant]
     Active Substance: PAROXETINE
  8. PREDNISONE. [Concomitant]
     Active Substance: PREDNISONE
  9. MELPHALAN. [Suspect]
     Active Substance: MELPHALAN
     Indication: MALIGNANT MELANOMA
     Dosage: ?          OTHER FREQUENCY:QD 4 DAYS Q 6W;?
     Route: 048
  10. CALCIUM 600 [Concomitant]
     Active Substance: CALCIUM
  11. VITAMIN C [Concomitant]
     Active Substance: ASCORBIC ACID
  12. IRON [Concomitant]
     Active Substance: IRON
  13. CALCITRIOL. [Concomitant]
     Active Substance: CALCITRIOL
  14. GARLIC. [Concomitant]
     Active Substance: GARLIC
  15. HYDROCODONE?ACETAMINOPHEN [Concomitant]
     Active Substance: ACETAMINOPHEN\HYDROCODONE
  16. ONDANSETRON [Concomitant]
     Active Substance: ONDANSETRON
  17. SODIUM BICARBONATE. [Concomitant]
     Active Substance: SODIUM BICARBONATE
  18. VIAMIN E [Concomitant]
  19. AMLODIPINE [Concomitant]
     Active Substance: AMLODIPINE BESYLATE
  20. APPLE CIDER VINEGAR [Concomitant]
     Active Substance: APPLE CIDER VINEGAR
  21. MYRBETRIQ [Concomitant]
     Active Substance: MIRABEGRON
  22. VITAMIN D3 [Concomitant]
     Active Substance: CHOLECALCIFEROL

REACTIONS (1)
  - Disease progression [None]
